FAERS Safety Report 8395813-8 (Version None)
Quarter: 2012Q2

REPORT INFORMATION
  Report Type: 
  Country: None (occurrence: None)
  Receive Date: 20120529
  Receipt Date: 20120529
  Transmission Date: 20120825
  Serious: Yes (Other)
  Sender: FDA-Public Use
  Company Number: None

PATIENT
  Age: 51 Year
  Sex: Male
  Weight: 120.2032 kg

DRUGS (2)
  1. CLINDAMYCIN HCL [Suspect]
     Indication: ENDODONTIC PROCEDURE
     Dosage: 1 PILL 3 TIMES DAILY PO
     Route: 048
     Dates: start: 20120322, end: 20120323
  2. CLINDAMYCIN HCL [Suspect]
     Indication: PROPHYLAXIS
     Dosage: 1 PILL 3 TIMES DAILY PO
     Route: 048
     Dates: start: 20120322, end: 20120323

REACTIONS (3)
  - NAUSEA [None]
  - WRONG TECHNIQUE IN DRUG USAGE PROCESS [None]
  - ABDOMINAL DISCOMFORT [None]
